FAERS Safety Report 4675699-5 (Version None)
Quarter: 2005Q2

REPORT INFORMATION
  Report Type: 
  Country: None (occurrence: None)
  Receive Date: 20050527
  Receipt Date: 20050202
  Transmission Date: 20051028
  Serious: Yes (Life-Threatening, Other)
  Sender: FDA-Public Use
  Company Number: US-BRISTOL-MYERS SQUIBB COMPANY-12846499

PATIENT
  Age: 63 Year
  Sex: Female
  Weight: 53 kg

DRUGS (13)
  1. ERBITUX [Suspect]
     Indication: COLON CANCER
     Dosage: 600 MG INITIATED.  EVENT OCCURRED AFTER 200 MG INFUSED.
     Route: 042
     Dates: start: 20050202
  2. ALOXI [Concomitant]
     Indication: PREMEDICATION
     Dates: start: 20050202
  3. ATIVAN [Concomitant]
     Indication: PREMEDICATION
     Dates: start: 20050202
  4. BENADRYL [Concomitant]
     Indication: PREMEDICATION
     Route: 040
     Dates: start: 20050202
  5. HEXADROL [Concomitant]
     Indication: PREMEDICATION
     Dates: start: 20050202
  6. EXTRA STRENGTH TYLENOL [Concomitant]
     Indication: PREMEDICATION
     Route: 048
     Dates: start: 20050202
  7. ATENOLOL AND CHLORTHALIDONE [Concomitant]
     Dosage: 1 DOSAGE FORM = 50/25 MG.
  8. CELEBREX [Concomitant]
  9. COUMADIN [Concomitant]
  10. EFFEXOR XR [Concomitant]
  11. NEXIUM [Concomitant]
  12. PREMARIN [Concomitant]
  13. VITAMIN B6 [Concomitant]

REACTIONS (1)
  - COUGH [None]
